FAERS Safety Report 24981524 (Version 1)
Quarter: 2025Q1

REPORT INFORMATION
  Report Type: Spontaneous
  Country: CN (occurrence: CN)
  Receive Date: 20250218
  Receipt Date: 20250218
  Transmission Date: 20250409
  Serious: Yes (Other)
  Sender: PFIZER
  Company Number: CN-PFIZER INC-PV202500018055

PATIENT
  Age: 75 Year
  Sex: Male
  Weight: 45 kg

DRUGS (1)
  1. TIGECYCLINE [Suspect]
     Active Substance: TIGECYCLINE
     Indication: Pneumonia
     Route: 041
     Dates: start: 20250115, end: 20250115

REACTIONS (1)
  - Tachypnoea [Recovered/Resolved]

NARRATIVE: CASE EVENT DATE: 20250115
